FAERS Safety Report 17588989 (Version 2)
Quarter: 2020Q2

REPORT INFORMATION
  Report Type: Spontaneous
  Country: BR (occurrence: BR)
  Receive Date: 20200327
  Receipt Date: 20200626
  Transmission Date: 20200713
  Serious: Yes (Hospitalization)
  Sender: FDA-Public Use
  Company Number: BR-GLAXOSMITHKLINE-BR2020039345

PATIENT
  Age: 8 Month
  Sex: Male

DRUGS (1)
  1. AEROLIN [Suspect]
     Active Substance: ALBUTEROL
     Indication: PRODUCT USED FOR UNKNOWN INDICATION
     Dosage: UNK, 6D

REACTIONS (3)
  - Product prescribing issue [Unknown]
  - Ill-defined disorder [Recovered/Resolved]
  - Product use issue [Unknown]
